FAERS Safety Report 13787696 (Version 1)
Quarter: 2017Q3

REPORT INFORMATION
  Report Type: Spontaneous
  Country: US (occurrence: US)
  Receive Date: 20170725
  Receipt Date: 20170725
  Transmission Date: 20171127
  Serious: No
  Sender: FDA-Public Use
  Company Number: US-JNJFOC-20170202015

PATIENT
  Sex: Female
  Weight: 47.63 kg

DRUGS (3)
  1. IBUPROFEN. [Suspect]
     Active Substance: IBUPROFEN
     Indication: PRODUCT USED FOR UNKNOWN INDICATION
     Route: 065
  2. IBUPROFEN. [Suspect]
     Active Substance: IBUPROFEN
     Route: 065
  3. LYSINE [Concomitant]
     Active Substance: LYSINE
     Indication: ORAL HERPES
     Route: 065

REACTIONS (1)
  - Drug hypersensitivity [Unknown]
